FAERS Safety Report 7148109-6 (Version None)
Quarter: 2010Q4

REPORT INFORMATION
  Report Type: 
  Country: None (occurrence: None)
  Receive Date: 20101209
  Receipt Date: 20101130
  Transmission Date: 20110411
  Serious: No
  Sender: FDA-Public Use
  Company Number: US-PFIZER INC-US-WYE-H18438410

PATIENT
  Age: 52 Year
  Sex: Female
  Weight: 88.9 kg

DRUGS (4)
  1. PRISTIQ [Suspect]
     Indication: DEPRESSION
     Dosage: 50 MG, UNK
     Route: 065
     Dates: start: 20100921, end: 20100101
  2. PRISTIQ [Suspect]
     Dosage: 50 MG, UNK
     Route: 065
     Dates: start: 20101019, end: 20101025
  3. ABILIFY [Concomitant]
     Indication: MOOD ALTERED
     Dosage: 10 MG, 1X/DAY
     Route: 048
     Dates: start: 20100406
  4. AMBIEN [Concomitant]
     Indication: INSOMNIA
     Dosage: 10 MG, 1X/DAY AT BEDTIME

REACTIONS (3)
  - IMPAIRED DRIVING ABILITY [None]
  - MUSCLE TWITCHING [None]
  - VISION BLURRED [None]
